FAERS Safety Report 9118813 (Version 1)
Quarter: 2013Q1

REPORT INFORMATION
  Report Type: Spontaneous
  Country: US (occurrence: None)
  Receive Date: 20130130
  Receipt Date: 20130130
  Transmission Date: 20140127
  Serious: Yes (Hospitalization, Other)
  Sender: FDA-Public Use
  Company Number: AUR-APL-2013-01063

PATIENT
  Age: 44 Year
  Sex: Male

DRUGS (1)
  1. METFORMIN [Suspect]
     Indication: PRODUCT USED FOR UNKNOWN INDICATION

REACTIONS (15)
  - Suicide attempt [None]
  - Lactic acidosis [None]
  - Loss of consciousness [None]
  - Somnolence [None]
  - Intentional overdose [None]
  - Blood pressure decreased [None]
  - Heart rate decreased [None]
  - Respiratory rate increased [None]
  - Body temperature decreased [None]
  - Blood creatine increased [None]
  - Blood glucose increased [None]
  - Blood potassium increased [None]
  - White blood cell count decreased [None]
  - Drug screen positive [None]
  - Dialysis [None]
